FAERS Safety Report 6109662-4 (Version None)
Quarter: 2009Q1

REPORT INFORMATION
  Report Type: 
  Country: None (occurrence: None)
  Receive Date: 20090310
  Receipt Date: 20080204
  Transmission Date: 20090719
  Serious: No
  Sender: FDA-Public Use
  Company Number: A0707055A

PATIENT
  Age: 30 Year
  Sex: Female

DRUGS (1)
  1. NICORETTE (MINT) [Suspect]
     Dates: start: 20080130

REACTIONS (5)
  - FEELING ABNORMAL [None]
  - FEELING DRUNK [None]
  - HEART RATE INCREASED [None]
  - INSOMNIA [None]
  - NICOTINE DEPENDENCE [None]
